FAERS Safety Report 7763064-3 (Version None)
Quarter: 2011Q3

REPORT INFORMATION
  Report Type: 
  Country: None (occurrence: None)
  Receive Date: 20110920
  Receipt Date: 20110906
  Transmission Date: 20111222
  Serious: Yes (Hospitalization)
  Sender: FDA-Public Use
  Company Number: JP-PFIZER INC-2011091924

PATIENT
  Age: 83 Year
  Sex: Male

DRUGS (15)
  1. LANTUS [Concomitant]
     Dosage: 6 IU, 1X/DAY AT BEDTIME
  2. NOVORAPID [Concomitant]
     Dosage: 5 IU BEFORE LUNCH
     Dates: start: 20101219
  3. MIGLITOL [Suspect]
     Indication: TYPE 2 DIABETES MELLITUS
     Dosage: 25 MG, 3X/DAY
     Route: 048
     Dates: start: 20100320
  4. NOVORAPID [Concomitant]
     Dosage: 10 IU (4 IU- 4 IU- 2 IU)
     Dates: start: 20110129
  5. LANTUS [Concomitant]
     Dosage: 7 IU, 1X/DAY AT BEDTIME
  6. ACECOL [Concomitant]
     Dosage: UNK
  7. LIPITOR [Concomitant]
     Dosage: UNK
  8. ATORVASTATIN CALCIUM [Concomitant]
  9. NOVORAPID [Concomitant]
     Dosage: UNK
     Dates: start: 20110302
  10. LANTUS [Concomitant]
     Dosage: UNK
  11. PRAVASTATIN SODIUM [Concomitant]
     Dosage: UNK
  12. AMLODIPINE BESILATE [Concomitant]
  13. NOVORAPID [Concomitant]
     Dosage: 12 IU (4 IU- 5 IU- 3 IU)
  14. NORVASC [Concomitant]
     Dosage: UNK
  15. NOVORAPID [Concomitant]
     Dosage: 11 IU (4 IU- 4 IU- 3 IU)
     Dates: start: 20101225, end: 20110129

REACTIONS (4)
  - SYNCOPE [None]
  - ALTERED STATE OF CONSCIOUSNESS [None]
  - HYPOGLYCAEMIA [None]
  - HYPOPHAGIA [None]
